FAERS Safety Report 4999105-6 (Version None)
Quarter: 2006Q2

REPORT INFORMATION
  Report Type: 
  Country: None (occurrence: None)
  Receive Date: 20060509
  Receipt Date: 20060419
  Transmission Date: 20061013
  Serious: Yes (Hospitalization)
  Sender: FDA-Public Use
  Company Number: US200601002863

PATIENT
  Age: 49 Year
  Sex: Female
  Weight: 87.5 kg

DRUGS (7)
  1. CYMBALTA [Suspect]
     Indication: BACK PAIN
     Dosage: 60 MG, DAILY (1/D)
     Dates: end: 20050101
  2. PREVACID [Concomitant]
  3. MIRAPEX [Concomitant]
  4. TOPROL-XL [Concomitant]
  5. WELLBUTRIN SR [Concomitant]
  6. SINGULAIR [Concomitant]
  7. SYNTHROID [Concomitant]

REACTIONS (3)
  - CHEST PAIN [None]
  - DYSPNOEA [None]
  - GASTROOESOPHAGEAL REFLUX DISEASE [None]
